FAERS Safety Report 10162522 (Version 1)
Quarter: 2014Q2

REPORT INFORMATION
  Report Type: Spontaneous
  Country: IT (occurrence: None)
  Receive Date: 20140507
  Receipt Date: 20140507
  Transmission Date: 20141212
  Serious: Yes (Life-Threatening)
  Sender: FDA-Public Use
  Company Number: 2319094

PATIENT
  Age: 53 Year
  Sex: Female

DRUGS (4)
  1. EPIRUBICIN HYDROCHLORIDE [Suspect]
     Indication: BREAST CANCER
     Dosage: 90 MG, TOTAL
     Route: 042
     Dates: start: 20140401, end: 20140401
  2. ENDOXAN /00021101/ [Suspect]
     Indication: PRODUCT USED FOR UNKNOWN INDICATION
     Dosage: 900 MG, TOTAL
     Route: 042
     Dates: start: 20140401, end: 20140401
  3. LIMICAN [Concomitant]
  4. SOLDESAM [Concomitant]

REACTIONS (2)
  - Epilepsy [None]
  - Loss of consciousness [None]
